FAERS Safety Report 15281621 (Version 1)
Quarter: 2018Q3

REPORT INFORMATION
  Report Type: Report from Study
  Country: US (occurrence: US)
  Receive Date: 20180815
  Receipt Date: 20180815
  Transmission Date: 20181010
  Serious: Yes (Hospitalization)
  Sender: FDA-Public Use
  Company Number: US-SHIRE-US201830624

PATIENT

DRUGS (2)
  1. GATTEX [Suspect]
     Active Substance: TEDUGLUTIDE\WATER
     Indication: GASTROINTESTINAL STOMA COMPLICATION
     Dosage: 0.25 ML, 1X/DAY:QD
     Route: 065
  2. GATTEX [Suspect]
     Active Substance: TEDUGLUTIDE\WATER
     Indication: OFF LABEL USE

REACTIONS (6)
  - Tachycardia [Unknown]
  - Off label use [Unknown]
  - Neoplasm [Unknown]
  - Bladder catheterisation [Unknown]
  - Inappropriate schedule of drug administration [Unknown]
  - Weight increased [Unknown]
